FAERS Safety Report 6868566-X (Version None)
Quarter: 2010Q3

REPORT INFORMATION
  Report Type: 
  Country: None (occurrence: None)
  Receive Date: 20100722
  Receipt Date: 20080603
  Transmission Date: 20110219
  Serious: No
  Sender: FDA-Public Use
  Company Number: US-PFIZER INC-2008047338

PATIENT

DRUGS (1)
  1. CHANTIX [Suspect]
     Indication: SMOKING CESSATION THERAPY
     Dates: start: 20080101, end: 20080401

REACTIONS (5)
  - ABNORMAL DREAMS [None]
  - DYSGEUSIA [None]
  - LUNG DISORDER [None]
  - MALAISE [None]
  - SLEEP DISORDER [None]
